FAERS Safety Report 10731842 (Version 2)
Quarter: 2015Q1

REPORT INFORMATION
  Report Type: Report from Study
  Country: US (occurrence: US)
  Receive Date: 20150123
  Receipt Date: 20150209
  Transmission Date: 20150721
  Serious: No
  Sender: FDA-Public Use
  Company Number: US-AMGEN INC.-USASL2015005713

PATIENT
  Age: 56 Year
  Sex: Female

DRUGS (2)
  1. ENBREL [Suspect]
     Active Substance: ETANERCEPT
     Indication: PSORIATIC ARTHROPATHY
     Dosage: 50 MG, QWK
     Route: 058
     Dates: start: 20150113
  2. ENBREL [Suspect]
     Active Substance: ETANERCEPT
     Indication: RHEUMATOID ARTHRITIS
     Dosage: UNK
     Route: 065

REACTIONS (5)
  - Injection site pain [Recovered/Resolved]
  - Injection site swelling [Recovering/Resolving]
  - Injection site reaction [Not Recovered/Not Resolved]
  - Injection site pruritus [Recovering/Resolving]
  - Injection site erythema [Recovering/Resolving]

NARRATIVE: CASE EVENT DATE: 20150119
